FAERS Safety Report 24375694 (Version 2)
Quarter: 2025Q1

REPORT INFORMATION
  Report Type: Spontaneous
  Country: PT (occurrence: PT)
  Receive Date: 20240928
  Receipt Date: 20250121
  Transmission Date: 20250408
  Serious: Yes (Hospitalization, Other)
  Sender: CELLTRION
  Company Number: PT-PFIZER INC-202400258891

PATIENT

DRUGS (1)
  1. INFLIXIMAB [Suspect]
     Active Substance: INFLIXIMAB
     Indication: Crohn^s disease
     Route: 042

REACTIONS (4)
  - Sacroiliitis [Recovering/Resolving]
  - Infection [Recovering/Resolving]
  - Pelvic abscess [Recovering/Resolving]
  - Staphylococcal bacteraemia [Recovering/Resolving]
